FAERS Safety Report 7134122-1 (Version None)
Quarter: 2010Q4

REPORT INFORMATION
  Report Type: 
  Country: None (occurrence: None)
  Receive Date: 20101203
  Receipt Date: 20101201
  Transmission Date: 20110411
  Serious: Yes (Life-Threatening, Other)
  Sender: FDA-Public Use
  Company Number: US-PFIZER INC-2010032517

PATIENT
  Sex: Female
  Weight: 52.154 kg

DRUGS (4)
  1. NIFEDIPINE [Suspect]
     Indication: ARRHYTHMIA
     Dosage: 60 MG, 1X/DAY
     Route: 048
     Dates: start: 19950101
  2. NIFEDIPINE [Suspect]
     Dosage: UNK
     Dates: start: 20050601
  3. NIFEDIPINE [Suspect]
     Dosage: 60 MG, UNK
  4. SYNTHROID [Concomitant]
     Dosage: UNK, DAILY

REACTIONS (5)
  - BEDRIDDEN [None]
  - DIZZINESS [None]
  - DRUG HYPERSENSITIVITY [None]
  - GAIT DISTURBANCE [None]
  - MALAISE [None]
